FAERS Safety Report 15255325 (Version 1)
Quarter: 2018Q3

REPORT INFORMATION
  Report Type: Spontaneous
  Country: US (occurrence: US)
  Receive Date: 20180808
  Receipt Date: 20180808
  Transmission Date: 20181010
  Serious: No
  Sender: FDA-Public Use
  Company Number: US-PFIZER INC-2018317129

PATIENT
  Age: 59 Year
  Sex: Male
  Weight: 95.25 kg

DRUGS (2)
  1. LYRICA [Suspect]
     Active Substance: PREGABALIN
     Indication: NEURALGIA
     Dosage: THREE 300MG CAPSULES A DAY
     Dates: start: 201703
  2. LYRICA [Suspect]
     Active Substance: PREGABALIN
     Dosage: 300 MG, TWICE A DAY

REACTIONS (4)
  - Overdose [Unknown]
  - Dry mouth [Not Recovered/Not Resolved]
  - Drug intolerance [Unknown]
  - Drug effect incomplete [Unknown]

NARRATIVE: CASE EVENT DATE: 201703
